FAERS Safety Report 7551200-3 (Version None)
Quarter: 2011Q2

REPORT INFORMATION
  Report Type: 
  Country: None (occurrence: None)
  Receive Date: 20110616
  Receipt Date: 20110603
  Transmission Date: 20111010
  Serious: Yes (Hospitalization, Other)
  Sender: FDA-Public Use
  Company Number: PHHY2009AU53086

PATIENT
  Sex: Female

DRUGS (6)
  1. CLOZAPINE [Suspect]
     Dosage: 25-50 MG, QD
  2. CLOZAPINE [Suspect]
     Indication: SCHIZOAFFECTIVE DISORDER
     Dosage: 300 MG, QD
     Route: 048
  3. CLOZAPINE [Suspect]
     Dosage: 275 MG, QD
  4. CLOZAPINE [Suspect]
     Dosage: 100 MG, QD
  5. BETA BLOCKING AGENTS [Concomitant]
  6. SERTRALINE HYDROCHLORIDE [Concomitant]

REACTIONS (10)
  - DIARRHOEA [None]
  - NORMAL NEWBORN [None]
  - URINARY INCONTINENCE [None]
  - VOMITING [None]
  - FAECAL INCONTINENCE [None]
  - PARALYSIS [None]
  - DRUG EXPOSURE DURING PREGNANCY [None]
  - HEADACHE [None]
  - POSTERIOR REVERSIBLE ENCEPHALOPATHY SYNDROME [None]
  - PRE-ECLAMPSIA [None]
